FAERS Safety Report 24072003 (Version 1)
Quarter: 2024Q3

REPORT INFORMATION
  Report Type: Spontaneous
  Country: JP (occurrence: JP)
  Receive Date: 20240710
  Receipt Date: 20240710
  Transmission Date: 20241017
  Serious: Yes (Other)
  Sender: SANDOZ
  Company Number: JP-asahikaseip-2024-AER-02080

PATIENT
  Age: 81 Year

DRUGS (1)
  1. RECLAST [Suspect]
     Active Substance: ZOLEDRONIC ACID
     Indication: Osteoporosis
     Dosage: 5MG IN 1 YEAR
     Route: 041
     Dates: start: 20240401, end: 20240401

REACTIONS (3)
  - Cerebral infarction [Unknown]
  - Eyelid ptosis [Unknown]
  - Somnolence [Unknown]

NARRATIVE: CASE EVENT DATE: 20240401
